FAERS Safety Report 7158558-8 (Version None)
Quarter: 2010Q4

REPORT INFORMATION
  Report Type: 
  Country: None (occurrence: None)
  Receive Date: 20101214
  Receipt Date: 20100521
  Transmission Date: 20110411
  Serious: No
  Sender: FDA-Public Use
  Company Number: US-ASTRAZENECA-2010SE23582

PATIENT
  Age: 64 Year
  Sex: Male
  Weight: 78.9 kg

DRUGS (2)
  1. CRESTOR [Suspect]
     Indication: HYPERCHOLESTEROLAEMIA
     Route: 048
     Dates: start: 20090901
  2. LISINOPRIL [Concomitant]
     Indication: HYPERTENSION

REACTIONS (1)
  - HYPOTENSION [None]
